FAERS Safety Report 10112215 (Version 1)
Quarter: 2014Q2

REPORT INFORMATION
  Report Type: Report from Study
  Country: BR (occurrence: BR)
  Receive Date: 20140425
  Receipt Date: 20140425
  Transmission Date: 20141212
  Serious: Yes (Other)
  Sender: FDA-Public Use
  Company Number: PHHY2014BR050629

PATIENT
  Sex: Male
  Weight: 66 kg

DRUGS (7)
  1. EXELON [Suspect]
     Indication: DEMENTIA
     Dosage: 1 DF(1 CAPSULE), DAILY
  2. CASODEX [Concomitant]
     Indication: PROSTATIC DISORDER
     Dosage: 1 DF(1 TABLET), DAILY
     Dates: start: 2005
  3. DIGOXIN [Concomitant]
     Indication: ARRHYTHMIA
     Dosage: 1 DF (1 TABLET), QW
  4. ANCORON [Concomitant]
     Indication: ARRHYTHMIA
     Dosage: 1 DF (1 TABLET), DAILY
  5. RETEMIC [Concomitant]
     Indication: URINARY TRACT DISORDER
     Dosage: 1 DF (1 TABLET), DAILY
     Dates: start: 2005
  6. TEBONIN [Concomitant]
     Indication: NERVOUS SYSTEM DISORDER
     Dosage: 1 DF (1 TABLET), DAILY
     Dates: start: 2005
  7. PLAVIX [Concomitant]
     Indication: ASCITES
     Dosage: 1 DF (1 TABLET), DAILY

REACTIONS (2)
  - Prostate cancer [Not Recovered/Not Resolved]
  - Dysphagia [Unknown]
